FAERS Safety Report 5246423-2 (Version None)
Quarter: 2007Q1

REPORT INFORMATION
  Report Type: 
  Country: None (occurrence: None)
  Receive Date: 20070226
  Receipt Date: 20070215
  Transmission Date: 20070707
  Serious: Yes (Life-Threatening)
  Sender: FDA-Public Use
  Company Number: FR-SANOFI-SYNTHELABO-A02200700503

PATIENT
  Age: 60 Year
  Sex: Female

DRUGS (7)
  1. EPIVIR [Suspect]
     Indication: HIV INFECTION
     Route: 048
  2. KREDEX [Suspect]
     Indication: ARRHYTHMIA
     Route: 048
  3. VIDEX [Suspect]
     Indication: HIV INFECTION
     Route: 048
  4. ALDACTAZINE [Suspect]
     Indication: DRUG USE FOR UNKNOWN INDICATION
     Dosage: UNK
     Route: 048
  5. PLAVIX [Suspect]
     Indication: ACUTE MYOCARDIAL INFARCTION
     Dosage: UNK
     Route: 048
     Dates: start: 20061001
  6. LOW MOLECULAR WEIGHT HEPARIN [Concomitant]
     Indication: ACUTE MYOCARDIAL INFARCTION
     Dosage: UNK
     Route: 058
     Dates: start: 20061001
  7. KALETRA [Suspect]
     Indication: HIV INFECTION
     Route: 048

REACTIONS (3)
  - ACUTE PULMONARY OEDEMA [None]
  - CARDIAC FAILURE [None]
  - MYOCARDIAL INFARCTION [None]
